FAERS Safety Report 9110414 (Version 1)
Quarter: 2013Q1

REPORT INFORMATION
  Report Type: Spontaneous
  Country: US (occurrence: US)
  Receive Date: 20130219
  Receipt Date: 20130219
  Transmission Date: 20140127
  Serious: No
  Sender: FDA-Public Use
  Company Number: US-BRISTOL-MYERS SQUIBB COMPANY-16924128

PATIENT
  Age: 54 Year
  Sex: Female
  Weight: 68.03 kg

DRUGS (2)
  1. ORENCIA FOR INJ [Suspect]
     Indication: RHEUMATOID ARTHRITIS
     Dosage: PRESCRIPTION #: 61988150 ORENCIA IV FOR SEVERAL YEARS, SQ FOR 2 MONTH LAST DOSE:27AUG12,1SEP12
     Route: 058
  2. METHOTREXATE [Concomitant]

REACTIONS (1)
  - Drug administration error [Unknown]
